FAERS Safety Report 6403969-9 (Version None)
Quarter: 2009Q4

REPORT INFORMATION
  Report Type: 
  Country: None (occurrence: None)
  Receive Date: 20091016
  Receipt Date: 20090805
  Transmission Date: 20100525
  Serious: No
  Sender: FDA-Public Use
  Company Number: IT-ALEXION-A200900648

PATIENT
  Sex: Female

DRUGS (2)
  1. SOLIRIS [Suspect]
     Indication: PAROXYSMAL NOCTURNAL HAEMOGLOBINURIA
     Dosage: INITIATION PHASE (WITHIN CT)
  2. SOLIRIS [Suspect]
     Dosage: 900 MG
     Route: 042
     Dates: end: 20090720

REACTIONS (2)
  - APLASTIC ANAEMIA [None]
  - BLOOD COUNT ABNORMAL [None]
